FAERS Safety Report 4841338-3 (Version None)
Quarter: 2005Q4

REPORT INFORMATION
  Report Type: 
  Country: None (occurrence: None)
  Receive Date: 20051130
  Receipt Date: 20051125
  Transmission Date: 20060501
  Serious: Yes (Hospitalization)
  Sender: FDA-Public Use
  Company Number: JP-JPN-A20052849

PATIENT
  Sex: Male

DRUGS (3)
  1. ZOVIRAX [Suspect]
     Indication: ENCEPHALITIS HERPES
     Route: 042
     Dates: start: 20051110
  2. CYCLOSPORINE [Suspect]
  3. FLUMARIN [Suspect]

REACTIONS (1)
  - RENAL DISORDER [None]
